FAERS Safety Report 20637508 (Version 1)
Quarter: 2022Q1

REPORT INFORMATION
  Report Type: Report from Study
  Country: US (occurrence: US)
  Receive Date: 20220325
  Receipt Date: 20220325
  Transmission Date: 20220423
  Serious: Yes (Congenital Anomaly, Other)
  Sender: FDA-Public Use
  Company Number: US-ViiV Healthcare Limited-US2022GSK054027

PATIENT
  Age: 0 Year
  Sex: Female
  Weight: 2.798 kg

DRUGS (3)
  1. DOLUTEGRAVIR [Suspect]
     Active Substance: DOLUTEGRAVIR
     Indication: HIV infection
     Dosage: 50 MG, QD
     Route: 064
     Dates: start: 20180808
  2. TRUVADA [Suspect]
     Active Substance: EMTRICITABINE\TENOFOVIR DISOPROXIL FUMARATE
     Indication: HIV infection
     Dosage: 500 MG, QD
     Route: 064
     Dates: start: 20180808
  3. COMPLERA [Suspect]
     Active Substance: EMTRICITABINE\RILPIVIRINE HYDROCHLORIDE\TENOFOVIR DISOPROXIL FUMARATE
     Indication: HIV infection
     Dosage: UNK
     Route: 064

REACTIONS (6)
  - Cardiac aneurysm [Unknown]
  - Atrial enlargement [Unknown]
  - Ventricular enlargement [Unknown]
  - Ventricular hypertrophy [Unknown]
  - Left-to-right cardiac shunt [Unknown]
  - Foetal exposure during pregnancy [Unknown]

NARRATIVE: CASE EVENT DATE: 20180930
